FAERS Safety Report 4424276-X (Version None)
Quarter: 2004Q3

REPORT INFORMATION
  Report Type: 
  Country: None (occurrence: None)
  Receive Date: 20040809
  Receipt Date: 20040726
  Transmission Date: 20050211
  Serious: Yes (Other)
  Sender: FDA-Public Use
  Company Number: 2004051181

PATIENT
  Age: 10 Year
  Sex: Female
  Weight: 60 kg

DRUGS (5)
  1. CEREBYX [Suspect]
     Indication: STATUS EPILEPTICUS
     Dosage: (3 IN 1 D), INTRAVENOUS
     Dates: start: 20040725
  2. SALBUTAMOL (SALBUTAMOL) [Concomitant]
  3. SERETIDE MITE (FLUTICASONE PROPIONATE, SALMETEROL XINAFOATE) [Concomitant]
  4. LORATADINE [Concomitant]
  5. MOMETASONE FUROATE [Concomitant]

REACTIONS (7)
  - BALANCE DISORDER [None]
  - CHOREOATHETOSIS [None]
  - CRYING [None]
  - DISCOMFORT [None]
  - DIZZINESS [None]
  - DYSKINESIA [None]
  - FEELING ABNORMAL [None]
